FAERS Safety Report 13650941 (Version 1)
Quarter: 2017Q2

REPORT INFORMATION
  Report Type: Report from Study
  Country: US (occurrence: US)
  Receive Date: 20170614
  Receipt Date: 20170614
  Transmission Date: 20170830
  Serious: Yes (Death, Hospitalization)
  Sender: FDA-Public Use
  Company Number: US-TORRENT-00002889

PATIENT
  Age: 87 Year
  Sex: Female

DRUGS (10)
  1. TRAZODONE [Suspect]
     Active Substance: TRAZODONE HYDROCHLORIDE
  2. OMEPRAZOLE. [Suspect]
     Active Substance: OMEPRAZOLE
  3. OLANZAPINE. [Suspect]
     Active Substance: OLANZAPINE
  4. MONTELUKAST [Suspect]
     Active Substance: MONTELUKAST SODIUM
  5. TAMSULOSIN HYDROCHLORIDE. [Suspect]
     Active Substance: TAMSULOSIN HYDROCHLORIDE
  6. PAROXETINE HYDROCHLORIDE. [Suspect]
     Active Substance: PAROXETINE HYDROCHLORIDE
  7. DOCUSATE SODIUM. [Suspect]
     Active Substance: DOCUSATE SODIUM
  8. MELATONIN [Suspect]
     Active Substance: MELATONIN
  9. COLECALCIFEROL [Suspect]
     Active Substance: CHOLECALCIFEROL
  10. AMLODIPINE BESYLATE. [Suspect]
     Active Substance: AMLODIPINE BESYLATE

REACTIONS (3)
  - Cardio-respiratory arrest [Fatal]
  - Completed suicide [Fatal]
  - Toxicity to various agents [Fatal]
